FAERS Safety Report 6978857-X (Version None)
Quarter: 2010Q3

REPORT INFORMATION
  Report Type: 
  Country: None (occurrence: None)
  Receive Date: 20100913
  Receipt Date: 20100901
  Transmission Date: 20110219
  Serious: No
  Sender: FDA-Public Use
  Company Number: JP-JNJCH-2010018365

PATIENT
  Sex: Male

DRUGS (9)
  1. ZYRTEC [Suspect]
     Indication: URTICARIA
     Dosage: TEXT:0.4 MG BID, DRY SYRUP 1.25%
     Route: 048
     Dates: start: 20100803, end: 20100803
  2. CEFZON [Concomitant]
     Indication: IMPETIGO
     Dosage: TEXT:UNKNOWN
     Route: 065
  3. MEIACT [Concomitant]
     Indication: IMPETIGO
     Dosage: TEXT:2G
     Route: 048
  4. ACUATIM [Concomitant]
     Indication: IMPETIGO
     Dosage: TEXT:UNKNOWN
     Route: 062
  5. RESTAMIN CORTIZON [Concomitant]
     Indication: URTICARIA
     Dosage: TEXT:UNKNOWN
     Route: 062
  6. CLEMASTINE FUMARATE [Concomitant]
     Indication: NASOPHARYNGITIS
     Dosage: TEXT:0.8G
     Route: 048
  7. MUCODYNE [Concomitant]
     Indication: NASOPHARYNGITIS
     Dosage: TEXT:1.2 G
     Route: 048
  8. BIOFERMIN R [Concomitant]
     Indication: PRODUCT USED FOR UNKNOWN INDICATION
     Dosage: TEXT:2 G
     Route: 048
  9. RINDERON-VG [Concomitant]
     Indication: URTICARIA
     Dosage: TEXT:UNKNOWN
     Route: 062
     Dates: start: 20100803

REACTIONS (4)
  - BLOOD LACTATE DEHYDROGENASE INCREASED [None]
  - HYPOAESTHESIA [None]
  - PAIN IN EXTREMITY [None]
  - PARAESTHESIA [None]
